FAERS Safety Report 17489259 (Version 2)
Quarter: 2020Q1

REPORT INFORMATION
  Report Type: Report from Study
  Country: CH (occurrence: CH)
  Receive Date: 20200303
  Receipt Date: 20200310
  Transmission Date: 20200409
  Serious: Yes (Hospitalization)
  Sender: FDA-Public Use
  Company Number: CH-PFIZER INC-2020088607

PATIENT
  Age: 77 Year
  Sex: Male

DRUGS (14)
  1. LISINOPRIL SPIRIG [Suspect]
     Active Substance: LISINOPRIL
     Dosage: 20 MG (EQUIVALENT TO ZESTRIL), 1X/DAY (MORNING)
     Route: 048
  2. DAFALGAN [Concomitant]
     Active Substance: ACETAMINOPHEN
     Dosage: 1 G, 4X/DAY (1 MORNING, 1 AFTERNOON, 1 EVENING, 1 AT NIGHT)
     Route: 048
  3. MOXONIDINE [Concomitant]
     Active Substance: MOXONIDINE
     Dosage: 0.4 MG (PHYSIOTENS FORTE), 1X/DAY (1 EVENING)
     Route: 048
  4. TORASEMID SANDOZ ECO [Concomitant]
     Active Substance: TORSEMIDE
     Dosage: 5 MG (EQUIVALENT TO TORSEM), 2X/DAY (1 MORNING AND 1 AFTERNOON)
     Route: 048
  5. NOVALGIN (METAMIZOLE SODIUM) [Concomitant]
     Active Substance: METAMIZOLE SODIUM
     Dosage: 500 MG (OBLONG TABLET), 4X/DAY (1 MORNING, 1 AFTERNOON, 1 EVENING, 1 AT NIGHT)
     Route: 048
  6. METO ZEROK [Concomitant]
     Active Substance: METOPROLOL SUCCINATE
     Dosage: 100 MG (EXTENDED RELEASE TABLET), 2X/DAY (1 MONRING AND 1/2 EVENING)
     Route: 048
  7. CRESTOR [Concomitant]
     Active Substance: ROSUVASTATIN CALCIUM
     Dosage: 5 MG, 1X/DAY (1 MORNING)
     Route: 048
  8. NALOXONE HYDROCHLORIDE/OXYCODONE HYDROCHLORIDE [Concomitant]
     Active Substance: NALOXONE HYDROCHLORIDE\OXYCODONE HYDROCHLORIDE
     Dosage: [NALOXONE HCL 2.5MG]/[OXYCODONE HCL 5MG], ER TABLETS (EQUIVALENT TO TARGIN), 2X/DAY (1 MORN. 1 EVE.)
     Route: 048
  9. TAFAMIDIS [Suspect]
     Active Substance: TAFAMIDIS MEGLUMINE
     Indication: CARDIAC AMYLOIDOSIS
     Dosage: UNK, 1X/DAY (1 MORNING)
     Route: 048
     Dates: start: 20191203
  10. POTASSIUM CHLORIDE. [Concomitant]
     Active Substance: POTASSIUM CHLORIDE
     Dosage: 10 MMOL (KCL RETARD HAUSMANN), 1X/DAY (1 MORNING)
     Route: 048
  11. AMLODIPIN PFIZER [Concomitant]
     Active Substance: AMLODIPINE BESYLATE
     Dosage: 10 MG (EQUIVALENT TO NORVASC), 1X/DAY (1 EVENING)
     Route: 048
  12. ANXIOLIT [Concomitant]
     Active Substance: OXAZEPAM
     Dosage: 15 MG (EQUIVALENT TO SERESTA), 1X/DAY (AT NIGHT)
     Route: 048
  13. ALDACTONE [Concomitant]
     Active Substance: SPIRONOLACTONE
     Dosage: 25 MG, 1X/DAY (1/2 MORNING)
     Route: 048
  14. FRAGMIN [Concomitant]
     Active Substance: DALTEPARIN SODIUM
     Dosage: 7500 IU (PRE-FILLED SYRINGE 0.3 ML), 1X/DAY (1 EVENING)
     Route: 058

REACTIONS (2)
  - Hypersensitivity [Unknown]
  - Angioedema [Unknown]
